FAERS Safety Report 5727676-0 (Version None)
Quarter: 2008Q2

REPORT INFORMATION
  Report Type: 
  Country: None (occurrence: None)
  Receive Date: 20080430
  Receipt Date: 20080424
  Transmission Date: 20081010
  Serious: Yes (Death)
  Sender: FDA-Public Use
  Company Number: 2008BI003836

PATIENT
  Age: 49 Year
  Sex: Female

DRUGS (4)
  1. AVONEX [Suspect]
     Indication: MULTIPLE SCLEROSIS
     Dosage: 30 UG; QW; IM
     Route: 030
  2. SEDATIVES (NOS) [Concomitant]
  3. MUSCLE RELAXANTS (NOS) [Concomitant]
  4. PAIN MEDICATIONS (NOS) [Concomitant]

REACTIONS (1)
  - DEATH [None]
